FAERS Safety Report 25983554 (Version 1)
Quarter: 2025Q4

REPORT INFORMATION
  Report Type: Spontaneous
  Country: US (occurrence: US)
  Receive Date: 20251031
  Receipt Date: 20251031
  Transmission Date: 20260118
  Serious: Yes (Life-Threatening)
  Sender: Alora Pharma
  Company Number: US-ACELLA PHARMACEUTICALS, LLC-2025ALO02572

PATIENT
  Age: 39 Year
  Sex: Male

DRUGS (2)
  1. MEPROBAMATE [Suspect]
     Active Substance: MEPROBAMATE
     Dosage: 200 G
     Route: 048
  2. UNSPECIFIED INGREDIENT [Concomitant]
     Active Substance: UNSPECIFIED INGREDIENT
     Route: 048

REACTIONS (6)
  - Ileus paralytic [Recovered/Resolved]
  - Gastrointestinal haemorrhage [Recovered/Resolved]
  - Blood pressure decreased [Recovered/Resolved]
  - Overdose [Recovered/Resolved]
  - Anuria [Recovered/Resolved]
  - Respiratory arrest [Recovered/Resolved]
